FAERS Safety Report 23916051 (Version 4)
Quarter: 2024Q3

REPORT INFORMATION
  Report Type: Spontaneous
  Country: CA (occurrence: CA)
  Receive Date: 20240529
  Receipt Date: 20240911
  Transmission Date: 20241017
  Serious: Yes (Hospitalization)
  Sender: KARYOPHARM THERAPEUTICS
  Company Number: CA-KARYOPHARM-2024KPT000729

PATIENT

DRUGS (12)
  1. XPOVIO [Suspect]
     Active Substance: SELINEXOR
     Indication: Plasma cell myeloma
     Dosage: 80 MG ONCE A WEEK AT BEDTIME
     Route: 048
     Dates: start: 20240215
  2. XPOVIO [Suspect]
     Active Substance: SELINEXOR
     Dosage: 80 MG ONCE A WEEK
     Route: 048
     Dates: start: 20240315
  3. XPOVIO [Suspect]
     Active Substance: SELINEXOR
     Dosage: 60 MG, WEEKLY
     Route: 065
     Dates: start: 20240506
  4. XPOVIO [Suspect]
     Active Substance: SELINEXOR
     Dosage: 80 MG, WEEKLY
     Route: 048
     Dates: start: 2024
  5. XPOVIO [Suspect]
     Active Substance: SELINEXOR
     Dosage: 20 MG 3 TABS/ REDUCED DOSE
     Route: 065
     Dates: end: 202408
  6. AKYNZEO (NETUPITANT\PALONOSETRON HYDROCHLORIDE) [Concomitant]
     Active Substance: NETUPITANT\PALONOSETRON HYDROCHLORIDE
     Dosage: 300-0.5 MG, WEEKLY
     Route: 048
  7. DECADRON [Concomitant]
     Active Substance: DEXAMETHASONE
     Dosage: 10 MG ONCE AND TWICE WEEK / 8 TABLETS ONCE A MONTH
     Route: 048
  8. PROCHLORPERAZINE [Concomitant]
     Active Substance: PROCHLORPERAZINE
     Dosage: 10 MG, QD WHEN NEEDED
     Route: 048
  9. CELEBREX [Concomitant]
     Active Substance: CELECOXIB
     Dosage: 100 MG, BID
  10. DILAUDID [Concomitant]
     Active Substance: HYDROMORPHONE HYDROCHLORIDE
     Dosage: 1 MG, Q4H
  11. CORTISONE [Concomitant]
     Active Substance: CORTISONE
     Indication: Product used for unknown indication
  12. AREDIA [Concomitant]
     Active Substance: PAMIDRONATE DISODIUM
     Indication: Bone growth stimulation

REACTIONS (21)
  - Femur fracture [Recovered/Resolved]
  - Pharyngeal swelling [Unknown]
  - Wheezing [Unknown]
  - Abdominal pain upper [Not Recovered/Not Resolved]
  - Nasal congestion [Unknown]
  - Poor peripheral circulation [Unknown]
  - Procedural pain [Unknown]
  - Arthritis [Unknown]
  - Visual impairment [Recovered/Resolved]
  - Euphoric mood [Unknown]
  - Visual impairment [Unknown]
  - Nausea [Not Recovered/Not Resolved]
  - Decreased appetite [Unknown]
  - Diarrhoea [Unknown]
  - Platelet count decreased [Unknown]
  - Inappropriate schedule of product administration [Unknown]
  - Inappropriate schedule of product administration [Unknown]
  - Product dose omission in error [Unknown]
  - Off label use [Unknown]
  - Therapy interrupted [Recovered/Resolved]
  - Therapy interrupted [Recovered/Resolved]

NARRATIVE: CASE EVENT DATE: 20240101
